FAERS Safety Report 11199527 (Version 1)
Quarter: 2015Q2

REPORT INFORMATION
  Report Type: Spontaneous
  Country: US (occurrence: None)
  Receive Date: 20150616
  Receipt Date: 20150616
  Transmission Date: 20150821
  Serious: Yes (Life-Threatening, Hospitalization, Disabling)
  Sender: FDA-Public Use
  Company Number: None

PATIENT
  Age: 46 Year
  Sex: Male
  Weight: 79.38 kg

DRUGS (5)
  1. MINERALS [Concomitant]
     Active Substance: MINERALS
  2. VALIUM [Concomitant]
     Active Substance: DIAZEPAM
  3. GLUTATHIONE [Concomitant]
     Active Substance: GLUTATHIONE
  4. LEVAQUIN [Suspect]
     Active Substance: LEVOFLOXACIN
     Indication: URINARY TRACT INFECTION
     Dosage: 5 PILLS ONCE A DAY BY MOUTH
     Route: 048
     Dates: start: 20101024, end: 20101029
  5. MULTIVTAMINS [Concomitant]

REACTIONS (47)
  - Visual acuity reduced [None]
  - Testicular pain [None]
  - Food allergy [None]
  - Restless legs syndrome [None]
  - Mitochondrial cytopathy [None]
  - Dysphagia [None]
  - Chronic sinusitis [None]
  - Dry mouth [None]
  - Aphonia [None]
  - Heart rate increased [None]
  - Stress [None]
  - Muscle atrophy [None]
  - Coordination abnormal [None]
  - Gallbladder polyp [None]
  - Drug hypersensitivity [None]
  - Abnormal dreams [None]
  - Sinus disorder [None]
  - Tinnitus [None]
  - Dry throat [None]
  - Fatigue [None]
  - Temperature intolerance [None]
  - Nervousness [None]
  - Dizziness [None]
  - Memory impairment [None]
  - Disturbance in attention [None]
  - Unevaluable event [None]
  - Pruritus [None]
  - Burning sensation [None]
  - Joint crepitation [None]
  - Food intolerance [None]
  - Feeling abnormal [None]
  - Lipoma [None]
  - Myalgia [None]
  - Muscle spasms [None]
  - Arthropathy [None]
  - Hypoacusis [None]
  - Asthenia [None]
  - Dry skin [None]
  - Hair texture abnormal [None]
  - Tendon pain [None]
  - Pain [None]
  - Eye irritation [None]
  - Insomnia [None]
  - Laryngeal pain [None]
  - Eye pain [None]
  - Decreased appetite [None]
  - Panic attack [None]

NARRATIVE: CASE EVENT DATE: 20101024
